FAERS Safety Report 19636590 (Version 2)
Quarter: 2021Q3

REPORT INFORMATION
  Report Type: Spontaneous
  Country: PT (occurrence: PT)
  Receive Date: 20210730
  Receipt Date: 20210802
  Transmission Date: 20211014
  Serious: Yes (Other)
  Sender: FDA-Public Use
  Company Number: PT-ACCORD-233520

PATIENT
  Age: 78 Year
  Weight: 68 kg

DRUGS (1)
  1. PACLITAXEL ACCORD [Suspect]
     Active Substance: PACLITAXEL
     Indication: BREAST CANCER STAGE IV
     Dosage: 130 MG, WEEKLY. DILUTED IN 250 CC INFUSION 1 HOUR, CONCENTRATE FOR SOLUTION FOR INFUSION
     Route: 042
     Dates: start: 20210615, end: 20210615

REACTIONS (4)
  - Flushing [Recovered/Resolved]
  - Bronchospasm [Recovered/Resolved]
  - Hypertension [Recovered/Resolved]
  - Oxygen saturation decreased [Recovered/Resolved]

NARRATIVE: CASE EVENT DATE: 20210615
